FAERS Safety Report 8906355 (Version 1)
Quarter: 2012Q4

REPORT INFORMATION
  Report Type: Spontaneous
  Country: US (occurrence: None)
  Receive Date: 20121109
  Receipt Date: 20121109
  Transmission Date: 20130627
  Serious: Yes (Other)
  Sender: FDA-Public Use
  Company Number: None

PATIENT
  Age: 60 Year
  Sex: Female
  Weight: 54.43 kg

DRUGS (2)
  1. MICONAZOLE 7 [Suspect]
     Indication: YEAST INFECTION
     Dosage: 1 plastic applicator, at bedtime, vag
     Route: 067
     Dates: start: 20121102, end: 20121102
  2. MICONAZOLE 7 [Suspect]
     Indication: YEAST INFECTION
     Dates: start: 20121104, end: 20121104

REACTIONS (1)
  - Product container seal issue [None]
